FAERS Safety Report 17914160 (Version 1)
Quarter: 2020Q2

REPORT INFORMATION
  Report Type: Report from Study
  Country: US (occurrence: US)
  Receive Date: 20200618
  Receipt Date: 20200618
  Transmission Date: 20200714
  Serious: Yes (Hospitalization, Other)
  Sender: FDA-Public Use
  Company Number: US-B.I. PHARMACEUTICALS,INC./RIDGEFIELD-2019-BI-030406

PATIENT
  Age: 81 Year
  Sex: Male

DRUGS (1)
  1. OFEV [Suspect]
     Active Substance: NINTEDANIB
     Indication: IDIOPATHIC PULMONARY FIBROSIS
     Route: 048
     Dates: start: 20190529, end: 20200219

REACTIONS (9)
  - Aneurysm [Recovered/Resolved]
  - Dyspnoea exertional [Unknown]
  - Fatigue [Unknown]
  - Aneurysm ruptured [Unknown]
  - Diarrhoea [Recovered/Resolved]
  - Diarrhoea [Not Recovered/Not Resolved]
  - Cough [Unknown]
  - Decreased appetite [Unknown]
  - Oxygen saturation abnormal [Unknown]

NARRATIVE: CASE EVENT DATE: 20200220
